FAERS Safety Report 6878230-9 (Version None)
Quarter: 2010Q3

REPORT INFORMATION
  Report Type: 
  Country: None (occurrence: None)
  Receive Date: 20100728
  Receipt Date: 20100721
  Transmission Date: 20110219
  Serious: Yes (Other)
  Sender: FDA-Public Use
  Company Number: US-PFIZER INC-2010063455

PATIENT
  Sex: Female

DRUGS (1)
  1. DEPO-SUBQ PROVERA 104 [Suspect]
     Indication: ENDOMETRIOSIS
     Dosage: 104 MG, UNK
     Route: 058
     Dates: start: 20100420

REACTIONS (6)
  - CHILLS [None]
  - HEADACHE [None]
  - METRORRHAGIA [None]
  - MOOD SWINGS [None]
  - NERVOUSNESS [None]
  - VAGINAL DISCHARGE [None]
